FAERS Safety Report 20149068 (Version 1)
Quarter: 2021Q4

REPORT INFORMATION
  Report Type: Report from Study
  Country: IN (occurrence: IN)
  Receive Date: 20211204
  Receipt Date: 20211204
  Transmission Date: 20220303
  Serious: Yes (Death)
  Sender: FDA-Public Use
  Company Number: IN-NOVARTISPH-NVSC2020IN026957

PATIENT
  Age: 71 Year
  Sex: Male

DRUGS (1)
  1. TASIGNA [Suspect]
     Active Substance: NILOTINIB
     Indication: Chronic myeloid leukaemia
     Dosage: 400 MG, BID
     Route: 065
     Dates: start: 20191207, end: 202111

REACTIONS (2)
  - Death [Fatal]
  - Decreased appetite [Unknown]

NARRATIVE: CASE EVENT DATE: 20191201
